FAERS Safety Report 9099307 (Version 1)
Quarter: 2013Q1

REPORT INFORMATION
  Report Type: Spontaneous
  Country: US (occurrence: US)
  Receive Date: 20130213
  Receipt Date: 20130213
  Transmission Date: 20140127
  Serious: Yes (Death)
  Sender: FDA-Public Use
  Company Number: US-ELI_LILLY_AND_COMPANY-US201302001801

PATIENT
  Age: 26 Year
  Sex: Female

DRUGS (3)
  1. SYMBYAX [Suspect]
  2. BUPROPION [Concomitant]
  3. LAMOTRIGINE [Concomitant]

REACTIONS (1)
  - Completed suicide [Fatal]
